FAERS Safety Report 8289532-6 (Version None)
Quarter: 2012Q2

REPORT INFORMATION
  Report Type: 
  Country: None (occurrence: None)
  Receive Date: 20120417
  Receipt Date: 20120406
  Transmission Date: 20120825
  Serious: Yes (Other)
  Sender: FDA-Public Use
  Company Number: IT-BRISTOL-MYERS SQUIBB COMPANY-16508210

PATIENT
  Age: 64 Year
  Sex: Male
  Weight: 167 kg

DRUGS (6)
  1. NECITUMUMAB [Suspect]
     Indication: NON-SMALL CELL LUNG CANCER
     Dates: start: 20100622
  2. OXYCONTIN [Concomitant]
     Dates: start: 20091101
  3. OMEPRAZOLE [Concomitant]
     Dates: start: 20100501
  4. PEMETREXED DISODIUM [Suspect]
     Indication: NON-SMALL CELL LUNG CANCER
     Dosage: INF 16
     Dates: start: 20100622
  5. CISPLATIN [Suspect]
     Indication: NON-SMALL CELL LUNG CANCER
     Dosage: REG 1-22JUN10-136MG EVERY 21D RECENT INF 16,136 MG
     Route: 042
     Dates: start: 20100622
  6. ENOXAPARIN SODIUM [Concomitant]
     Dates: start: 20091101

REACTIONS (1)
  - MEDICATION ERROR [None]
